FAERS Safety Report 18508660 (Version 1)
Quarter: 2020Q4

REPORT INFORMATION
  Report Type: Spontaneous
  Country: US (occurrence: US)
  Receive Date: 20201117
  Receipt Date: 20201117
  Transmission Date: 20210114
  Serious: Yes (Disabling, Other)
  Sender: FDA-Public Use
  Company Number: US-SA-2020SA317298

PATIENT

DRUGS (1)
  1. ZANTAC [Suspect]
     Active Substance: RANITIDINE HYDROCHLORIDE
     Dosage: UNK
     Dates: start: 200412, end: 202003

REACTIONS (5)
  - Anhedonia [Unknown]
  - Disability [Unknown]
  - Pain [Unknown]
  - Breast cancer [Unknown]
  - Colon cancer [Unknown]

NARRATIVE: CASE EVENT DATE: 201606
